FAERS Safety Report 9843265 (Version 2)
Quarter: 2014Q1

REPORT INFORMATION
  Report Type: Spontaneous
  Country: IL (occurrence: IL)
  Receive Date: 20140124
  Receipt Date: 20140219
  Transmission Date: 20141002
  Serious: Yes (Death)
  Sender: FDA-Public Use
  Company Number: IL-B.I. PHARMACEUTICALS,INC./RIDGEFIELD-2014-BI-03120IL

PATIENT
  Age: 64 Year
  Sex: Male

DRUGS (10)
  1. GIOTRIF [Suspect]
     Indication: NON-SMALL CELL LUNG CANCER
     Route: 048
     Dates: start: 20140116, end: 20140121
  2. DEXAMETHASONE [Suspect]
     Indication: NON-SMALL CELL LUNG CANCER
     Route: 048
     Dates: end: 20140121
  3. DUROGESIC [Suspect]
     Indication: PAIN
     Dosage: 125 MCG
     Route: 062
     Dates: end: 20140121
  4. DUROGESIC [Suspect]
     Indication: NON-SMALL CELL LUNG CANCER
  5. PERCOCET [Suspect]
     Indication: PAIN
     Dosage: DOSE PER APPLICATION: OXYCODONE 5 MG AND PARACETAMOL 325 MG
     Route: 048
     Dates: end: 20140121
  6. PERCOCET [Suspect]
     Indication: NON-SMALL CELL LUNG CANCER
  7. OPTALGIN [Suspect]
     Indication: PAIN
     Route: 048
     Dates: end: 20140121
  8. OPTALGIN [Suspect]
     Indication: NON-SMALL CELL LUNG CANCER
  9. GEFITINIB/IRESSA [Concomitant]
     Indication: NON-SMALL CELL LUNG CANCER
     Route: 048
     Dates: start: 20110724, end: 20130129
  10. CARBOPLATIN + PEMETREXED [Concomitant]
     Indication: NON-SMALL CELL LUNG CANCER
     Dosage: FORMULATION: MULTIPLE DOSE VIAL
     Route: 042
     Dates: start: 20130129, end: 20131203

REACTIONS (1)
  - Respiratory failure [Fatal]
